FAERS Safety Report 5977331-7 (Version None)
Quarter: 2008Q4

REPORT INFORMATION
  Report Type: 
  Country: None (occurrence: None)
  Receive Date: 20081203
  Receipt Date: 20081124
  Transmission Date: 20090506
  Serious: Yes (Hospitalization)
  Sender: FDA-Public Use
  Company Number: PHHY2008DE22595

PATIENT
  Sex: Male

DRUGS (1)
  1. LEPONEX [Suspect]
     Route: 048

REACTIONS (5)
  - DRUG TOXICITY [None]
  - HERNIA [None]
  - INFLAMMATION [None]
  - SURGERY [None]
  - VASCULITIS CEREBRAL [None]
